FAERS Safety Report 10032591 (Version 15)
Quarter: 2015Q4

REPORT INFORMATION
  Report Type: Spontaneous
  Country: US (occurrence: US)
  Receive Date: 20140324
  Receipt Date: 20151210
  Transmission Date: 20160304
  Serious: Yes (Death, Hospitalization, Other)
  Sender: FDA-Public Use
  Company Number: US-GLAXOSMITHKLINE-A1027728A

PATIENT
  Age: 40 Year
  Sex: Female

DRUGS (15)
  1. FLOLAN [Suspect]
     Active Substance: EPOPROSTENOL SODIUM
     Dosage: UNK
     Dates: start: 20100714
  2. FLOLAN [Suspect]
     Active Substance: EPOPROSTENOL SODIUM
     Dosage: UNK
     Dates: start: 20100714
  3. FLOLAN [Suspect]
     Active Substance: EPOPROSTENOL SODIUM
     Dosage: UNK
     Dates: start: 20100714
  4. FLOLAN [Suspect]
     Active Substance: EPOPROSTENOL SODIUM
     Dosage: UNK
     Dates: start: 20100714
  5. FLOLAN [Suspect]
     Active Substance: EPOPROSTENOL SODIUM
     Dosage: UNK
     Dates: start: 20100714
  6. FLOLAN [Suspect]
     Active Substance: EPOPROSTENOL SODIUM
     Dosage: 56 NG/KG/MIN
     Route: 042
     Dates: start: 20100714
  7. FLOLAN [Suspect]
     Active Substance: EPOPROSTENOL SODIUM
     Dosage: 56 NG/KG/MIN CONTINUOUSLY
     Route: 042
  8. FLOLAN [Suspect]
     Active Substance: EPOPROSTENOL SODIUM
     Dosage: 56 NG/KG/MIN, CO
     Route: 042
     Dates: start: 20130226
  9. FLOLAN [Suspect]
     Active Substance: EPOPROSTENOL SODIUM
     Dosage: 56 NG/KG/MIN, CO
     Dates: start: 20130226
  10. FLOLAN [Suspect]
     Active Substance: EPOPROSTENOL SODIUM
     Indication: PULMONARY ARTERIAL HYPERTENSION
     Dosage: 56 NG/KG/MIN CONTINUOUSLY60,000 NG/ML CONCENTRATION1.5 MG VIAL STRENGTHPUMP RATE 85 ML/DAY86 ML/DAY
     Route: 042
     Dates: start: 20100714
  11. TRACLEER [Concomitant]
     Active Substance: BOSENTAN
  12. WARFARIN POTASSIUM [Concomitant]
     Active Substance: WARFARIN POTASSIUM
  13. COUMADIN [Concomitant]
     Active Substance: WARFARIN SODIUM
  14. LETAIRIS [Concomitant]
     Active Substance: AMBRISENTAN
  15. OPSUMIT [Concomitant]
     Active Substance: MACITENTAN

REACTIONS (23)
  - Cough [Unknown]
  - Renal disorder [Unknown]
  - Pulmonary arterial hypertension [Unknown]
  - Medical device change [Unknown]
  - Dyspnoea [Recovering/Resolving]
  - Hepatomegaly [Unknown]
  - Hypotension [Unknown]
  - Fluid imbalance [Unknown]
  - Upper respiratory tract infection [Not Recovered/Not Resolved]
  - Nasopharyngitis [Unknown]
  - Device breakage [Unknown]
  - Blood creatinine increased [Unknown]
  - Syncope [Unknown]
  - Abdominal distension [Unknown]
  - Oxygen saturation decreased [Unknown]
  - Fluid overload [Recovering/Resolving]
  - Fluid retention [Recovering/Resolving]
  - Weight decreased [Unknown]
  - Oxygen consumption decreased [Unknown]
  - Death [Fatal]
  - Oedema [Unknown]
  - Rash [Unknown]
  - Gastroenteritis viral [Unknown]

NARRATIVE: CASE EVENT DATE: 20140227
